FAERS Safety Report 6735200-9 (Version None)
Quarter: 2010Q2

REPORT INFORMATION
  Report Type: 
  Country: None (occurrence: None)
  Receive Date: 20100519
  Receipt Date: 20100519
  Transmission Date: 20101027
  Serious: Yes (Hospitalization, Disabling)
  Sender: FDA-Public Use
  Company Number: None

PATIENT
  Sex: Female
  Weight: 68.0396 kg

DRUGS (11)
  1. BONIVA [Suspect]
     Indication: OSTEOPOROSIS
     Dosage: 150 MG ONCE PER MONTH P.O.
     Route: 048
     Dates: start: 20060101, end: 20100501
  2. CORTISONE [Concomitant]
  3. FLUDROCORTISONE [Concomitant]
  4. HYDROCHLOROTHIAZIDE [Concomitant]
  5. CITRACAL WITH D [Concomitant]
  6. VITAMIN D [Concomitant]
  7. LORATADINE [Concomitant]
  8. FLURAZEPAM [Concomitant]
  9. FISH OIL [Concomitant]
  10. ASPIRIN [Concomitant]
  11. VYTORIN [Concomitant]

REACTIONS (2)
  - FEMUR FRACTURE [None]
  - STRESS FRACTURE [None]
